FAERS Safety Report 9950237 (Version 1)
Quarter: 2014Q1

REPORT INFORMATION
  Report Type: Report from Study
  Country: US (occurrence: US)
  Receive Date: 20140304
  Receipt Date: 20140304
  Transmission Date: 20141002
  Serious: No
  Sender: FDA-Public Use
  Company Number: US-ABBVIE-13P-163-1069080-00

PATIENT
  Age: 56 Year
  Sex: Female

DRUGS (4)
  1. PROVENTIL PLUS [Concomitant]
     Indication: DYSPNOEA
     Dosage: 1-2 PUFFS
  2. SEROQUEL [Concomitant]
     Indication: INSOMNIA
     Dosage: AT BEDTIME
  3. HUMIRA [Suspect]
     Indication: PSORIASIS
     Dates: start: 20130114
  4. HUMIRA [Suspect]
     Dates: start: 20130128

REACTIONS (2)
  - Bronchitis [Unknown]
  - Injection site pain [Recovered/Resolved]
